FAERS Safety Report 9059597 (Version 1)
Quarter: 2013Q1

REPORT INFORMATION
  Report Type: Spontaneous
  Country: US (occurrence: US)
  Receive Date: 20130212
  Receipt Date: 20130212
  Transmission Date: 20140127
  Serious: No
  Sender: FDA-Public Use
  Company Number: US-009507513-1302USA001537

PATIENT
  Age: 22 None
  Sex: Female

DRUGS (2)
  1. PROVENTIL [Suspect]
     Indication: ASTHMA
     Dosage: 2 PUFFS EVERY 4 HOURS, OR AS NEEDED
     Route: 055
     Dates: start: 201212
  2. VICODIN [Concomitant]

REACTIONS (3)
  - Asthma [Recovering/Resolving]
  - Drug dose omission [Unknown]
  - Product quality issue [Unknown]
